FAERS Safety Report 22322219 (Version 1)
Quarter: 2023Q2

REPORT INFORMATION
  Report Type: Spontaneous
  Country: US (occurrence: US)
  Receive Date: 20230516
  Receipt Date: 20230516
  Transmission Date: 20230722
  Serious: No
  Sender: FDA-Public Use
  Company Number: US-JNJFOC-20230512739

PATIENT
  Sex: Female

DRUGS (1)
  1. WOMENS ROGAINE UNSCENTED [Suspect]
     Active Substance: MINOXIDIL
     Indication: Alopecia
     Dosage: DOSE: 1/2 A CUPFUL ONCE A DAY DURING NIGHT TIME
     Route: 061
     Dates: start: 20230430, end: 20230504

REACTIONS (4)
  - Trichorrhexis [Recovering/Resolving]
  - Application site dryness [Recovering/Resolving]
  - Alopecia [Recovering/Resolving]
  - Application site pruritus [Recovering/Resolving]

NARRATIVE: CASE EVENT DATE: 20230502
